FAERS Safety Report 5370569-1 (Version None)
Quarter: 2007Q2

REPORT INFORMATION
  Report Type: 
  Country: None (occurrence: None)
  Receive Date: 20070626
  Receipt Date: 20070614
  Transmission Date: 20071010
  Serious: Yes (Disabling, Other)
  Sender: FDA-Public Use
  Company Number: US-ELI_LILLY_AND_COMPANY-US200703004030

PATIENT
  Age: 74 Year
  Sex: Female
  Weight: 54.421 kg

DRUGS (6)
  1. EVISTA [Suspect]
     Indication: OSTEOPOROSIS
     Dosage: 60 MG, UNK
     Route: 048
  2. EVISTA [Suspect]
     Dosage: 60 MG, QOD
     Route: 048
     Dates: start: 20070101
  3. VITAMIN B-12 [Concomitant]
     Dosage: UNK, MONTHLY (1/M)
  4. FLONASE [Concomitant]
  5. ALTACE [Concomitant]
  6. VERAPAMIL [Concomitant]

REACTIONS (6)
  - ACCIDENT [None]
  - BONE DENSITY DECREASED [None]
  - GAIT DISTURBANCE [None]
  - INITIAL INSOMNIA [None]
  - PAIN [None]
  - PUBIC RAMI FRACTURE [None]
